FAERS Safety Report 5020055-3 (Version None)
Quarter: 2006Q2

REPORT INFORMATION
  Report Type: 
  Country: None (occurrence: None)
  Receive Date: 20060607
  Receipt Date: 20060228
  Transmission Date: 20061013
  Serious: Yes (Congenital Anomaly)
  Sender: FDA-Public Use
  Company Number: GB-GLAXOSMITHKLINE-B0413853A

PATIENT
  Age: 14 Month
  Sex: Female

DRUGS (4)
  1. RETROVIR [Suspect]
     Indication: HIV INFECTION
     Dosage: 300MG TWICE PER DAY
  2. ZIDOVUDINE [Concomitant]
     Indication: ANTIVIRAL PROPHYLAXIS
     Route: 048
  3. KALETRA [Concomitant]
  4. TENOFOVIR [Concomitant]

REACTIONS (3)
  - DENTAL CARIES [None]
  - DRUG EXPOSURE DURING PREGNANCY [None]
  - TOOTH DISCOLOURATION [None]
